FAERS Safety Report 8391947-2 (Version None)
Quarter: 2012Q2

REPORT INFORMATION
  Report Type: 
  Country: None (occurrence: None)
  Receive Date: 20120529
  Receipt Date: 20120522
  Transmission Date: 20120825
  Serious: Yes (Death)
  Sender: FDA-Public Use
  Company Number: JP-GLAXOSMITHKLINE-B0803885A

PATIENT
  Age: 89 Year
  Sex: Male

DRUGS (3)
  1. PAXIL [Suspect]
     Indication: DEPRESSION
     Dosage: 10MG PER DAY
     Route: 048
     Dates: start: 20120401, end: 20120501
  2. LEVOTHYROXINE SODIUM [Concomitant]
     Dosage: 50MG PER DAY
     Route: 048
     Dates: start: 20120401, end: 20120501
  3. PRIMPERAN TAB [Concomitant]
     Dosage: 20MG PER DAY
     Route: 048
     Dates: start: 20120401, end: 20120501

REACTIONS (1)
  - HEPATIC FAILURE [None]
